FAERS Safety Report 6984541-9 (Version None)
Quarter: 2010Q3

REPORT INFORMATION
  Report Type: 
  Country: None (occurrence: None)
  Receive Date: 20100915
  Receipt Date: 20100903
  Transmission Date: 20110219
  Serious: Yes (Other)
  Sender: FDA-Public Use
  Company Number: FI-PFIZER INC-2010111420

PATIENT
  Age: 45 Year
  Sex: Male

DRUGS (3)
  1. CHAMPIX [Suspect]
     Indication: SMOKING CESSATION THERAPY
     Dosage: 1 MG, 2X/DAY
     Dates: start: 20100810, end: 20100821
  2. CHAMPIX [Suspect]
     Dosage: UNK
     Dates: start: 20100810, end: 20100815
  3. THYROXIN [Concomitant]
     Indication: HYPOTHYROIDISM
     Dosage: 0,05 MG ONCE DAILY
     Route: 048

REACTIONS (6)
  - ABDOMINAL DISTENSION [None]
  - HYPOAESTHESIA ORAL [None]
  - LIP SWELLING [None]
  - OEDEMA MUCOSAL [None]
  - RASH PRURITIC [None]
  - URTICARIA [None]
